FAERS Safety Report 7901242-0 (Version None)
Quarter: 2011Q4

REPORT INFORMATION
  Report Type: 
  Country: None (occurrence: None)
  Receive Date: 20111108
  Receipt Date: 20111028
  Transmission Date: 20120403
  Serious: Yes (Life-Threatening, Hospitalization, Other)
  Sender: FDA-Public Use
  Company Number: PHHY2009BR30455

PATIENT
  Sex: Male
  Weight: 66 kg

DRUGS (13)
  1. APRESOLINE [Suspect]
     Dosage: 1 DF (50 MG) PER DAY
     Route: 048
  2. EPOGEN [Concomitant]
     Indication: ANAEMIA
     Dosage: 4000 U, Q8H
     Route: 058
     Dates: start: 20060701
  3. RASILEZ [Suspect]
     Indication: HYPERTENSION
     Route: 048
     Dates: start: 20110401
  4. APRESOLINE [Suspect]
     Dosage: 2 DF (25 MG) PER DAY
     Route: 048
  5. APRESOLINE [Suspect]
     Dosage: 2 DF (50 MG) PER DAY
     Route: 048
  6. CITONEURIN [Concomitant]
     Indication: VITAMIN SUPPLEMENTATION
     Dosage: 1 TABLET DAILY
     Route: 048
  7. FOLIC ACID [Concomitant]
     Indication: VITAMIN SUPPLEMENTATION
     Dosage: 1 DF (5 MG) DAILY
     Route: 048
  8. LIPITOR [Concomitant]
     Indication: BLOOD CHOLESTEROL ABNORMAL
     Dosage: 1 DF (20 MG) DAILY
     Route: 048
  9. LASIX [Concomitant]
     Indication: BLOOD PRESSURE ABNORMAL
     Dosage: 1 DF (40 MG) DAILY
     Route: 048
  10. APRESOLINE [Suspect]
     Indication: HYPERTENSION
     Dosage: 1 DF (25 MG) PER DAY
     Route: 048
     Dates: start: 20060101
  11. APRESOLINE [Suspect]
     Dosage: 3 DF (50 MG) PER DAY
     Route: 048
  12. APRESOLINE [Suspect]
     Dosage: 1 DF (25 MG)  BID
  13. APRESOLINE [Suspect]
     Dosage: 50 MG, 0.5 TABLET, BOTH MORNING AND NIGHT

REACTIONS (13)
  - COUGH [None]
  - WRONG TECHNIQUE IN DRUG USAGE PROCESS [None]
  - MUSCLE SPASMS [None]
  - OEDEMA PERIPHERAL [None]
  - HYPERTENSION [None]
  - ACUTE PULMONARY OEDEMA [None]
  - ERYTHEMA [None]
  - CARDIAC DISORDER [None]
  - RENAL DISORDER [None]
  - VASCULAR OCCLUSION [None]
  - BLOOD URIC ACID INCREASED [None]
  - FEELING ABNORMAL [None]
  - BLOOD PRESSURE DIASTOLIC DECREASED [None]
